FAERS Safety Report 8881685 (Version 1)
Quarter: 2012Q4

REPORT INFORMATION
  Report Type: 
  Country: US (occurrence: US)
  Receive Date: 20121105
  Receipt Date: 20121105
  Transmission Date: 20130627
  Serious: No
  Sender: FDA-Public Use
  Company Number: US-009507513-1211USA000598

PATIENT
  Sex: Male

DRUGS (4)
  1. PEGINTRON [Suspect]
     Indication: HEPATITIS C
     Dosage: 150 Microgram, qw
     Route: 058
     Dates: start: 20121026
  2. PAXIL [Concomitant]
  3. RIBAPAK [Concomitant]
     Dosage: PAK 1200/qd
  4. TYLENOL [Concomitant]

REACTIONS (3)
  - Influenza like illness [Unknown]
  - Fatigue [Unknown]
  - Weight loss poor [Unknown]
